FAERS Safety Report 11225914 (Version 1)
Quarter: 2015Q2

REPORT INFORMATION
  Report Type: Spontaneous
  Country: US (occurrence: US)
  Receive Date: 20150629
  Receipt Date: 20150629
  Transmission Date: 20150821
  Serious: No
  Sender: FDA-Public Use
  Company Number: US-009507513-2011SP052129

PATIENT
  Sex: Female

DRUGS (1)
  1. NUVARING [Suspect]
     Active Substance: ETHINYL ESTRADIOL\ETONOGESTREL
     Indication: CONTRACEPTION
     Dosage: ONE RING (1 DF)
     Route: 067

REACTIONS (2)
  - Metrorrhagia [Not Recovered/Not Resolved]
  - Implant site fibrosis [Not Recovered/Not Resolved]

NARRATIVE: CASE EVENT DATE: 201110
